FAERS Safety Report 16751775 (Version 2)
Quarter: 2019Q4

REPORT INFORMATION
  Report Type: Report from Study
  Country: CO (occurrence: CO)
  Receive Date: 20190828
  Receipt Date: 20191025
  Transmission Date: 20200122
  Serious: Yes (Hospitalization, Other)
  Sender: FDA-Public Use
  Company Number: CO-JNJFOC-20190829271

PATIENT
  Age: 56 Year
  Sex: Female
  Weight: 49 kg

DRUGS (2)
  1. SIMPONI [Suspect]
     Active Substance: GOLIMUMAB
     Indication: RHEUMATOID ARTHRITIS
     Route: 058
     Dates: start: 20160608
  2. METHOTREXATE. [Concomitant]
     Active Substance: METHOTREXATE
     Indication: RHEUMATOID ARTHRITIS
     Route: 048

REACTIONS (3)
  - Influenza [Recovered/Resolved]
  - Laryngitis [Recovered/Resolved]
  - Asphyxia [Unknown]

NARRATIVE: CASE EVENT DATE: 201908
